FAERS Safety Report 10402114 (Version 4)
Quarter: 2016Q2

REPORT INFORMATION
  Report Type: Report from Study
  Country: US (occurrence: US)
  Receive Date: 20140822
  Receipt Date: 20160518
  Transmission Date: 20160815
  Serious: Yes (Death, Other)
  Sender: FDA-Public Use
  Company Number: US-ROCHE-1356410

PATIENT

DRUGS (2)
  1. CAPECITABINE. [Suspect]
     Active Substance: CAPECITABINE
     Indication: RECTAL CANCER
     Dosage: IN GROUP 2 THROUGHOUT THE COURSE OF RADIATION THERAPY, SEVEN DAYS A WEEK BEGINNING THE DAY OF THE ST
     Route: 048
  2. OXALIPLATIN. [Suspect]
     Active Substance: OXALIPLATIN
     Indication: RECTAL CANCER
     Dosage: WEEKLY X 5 DURING RADIATION THERAPY
     Route: 042

REACTIONS (11)
  - Peripheral sensory neuropathy [Unknown]
  - Diarrhoea [Unknown]
  - Proctalgia [Unknown]
  - Nausea [Unknown]
  - Abdominal pain [Unknown]
  - Radiation skin injury [Unknown]
  - Fatigue [Unknown]
  - Palmar-plantar erythrodysaesthesia syndrome [Unknown]
  - Dehydration [Unknown]
  - Death [Fatal]
  - Vomiting [Unknown]
